FAERS Safety Report 5793364-8 (Version None)
Quarter: 2008Q2

REPORT INFORMATION
  Report Type: 
  Country: None (occurrence: None)
  Receive Date: 20080627
  Receipt Date: 20080626
  Transmission Date: 20081010
  Serious: Yes (Other)
  Sender: FDA-Public Use
  Company Number: B0526698A

PATIENT
  Age: 68 Year
  Sex: Male

DRUGS (16)
  1. REQUIP [Suspect]
     Indication: DRUG USE FOR UNKNOWN INDICATION
     Dosage: .25MG THREE TIMES PER DAY
     Route: 048
     Dates: start: 20080122, end: 20080101
  2. REQUIP [Suspect]
     Dosage: 4MG THREE TIMES PER DAY
     Route: 048
     Dates: start: 20080101
  3. MADOPAR [Concomitant]
     Route: 048
  4. SELEGILINE HCL [Concomitant]
     Dosage: 2.5MG PER DAY
     Route: 048
  5. BLADDERON [Concomitant]
     Dosage: 200MG THREE TIMES PER DAY
     Route: 048
  6. TAMSULOSIN HCL [Concomitant]
     Dosage: .2MG PER DAY
     Route: 048
  7. SEROQUEL [Concomitant]
     Dosage: 50MG PER DAY
     Route: 048
  8. GLYSENNID [Concomitant]
     Route: 048
  9. CYANOCOBALAMIN [Concomitant]
     Dosage: 500MCG THREE TIMES PER DAY
     Route: 048
  10. JUVELA N [Concomitant]
     Route: 048
  11. FERROMIA [Concomitant]
     Dosage: 50MG TWICE PER DAY
     Route: 048
  12. CABASER [Concomitant]
     Route: 048
     Dates: start: 20020801, end: 20050501
  13. PRAMIPEXOLE DIHYDROCHLORIDE [Concomitant]
     Route: 048
     Dates: start: 19980101, end: 20080201
  14. SYMMETREL [Concomitant]
     Route: 048
     Dates: end: 20070101
  15. PARLODEL [Concomitant]
     Route: 048
     Dates: start: 20020101
  16. UNKNOWN [Concomitant]
     Route: 048
     Dates: start: 19980601, end: 20000101

REACTIONS (2)
  - AORTIC VALVE INCOMPETENCE [None]
  - CARDIAC VALVE DISEASE [None]
